FAERS Safety Report 8517198-6 (Version None)
Quarter: 2012Q3

REPORT INFORMATION
  Report Type: 
  Country: None (occurrence: None)
  Receive Date: 20120706
  Receipt Date: 20120621
  Transmission Date: 20120928
  Serious: Yes (Other)
  Sender: FDA-Public Use
  Company Number: TPA2012A04041

PATIENT
  Sex: Male

DRUGS (1)
  1. ACTOS [Suspect]

REACTIONS (2)
  - DIALYSIS [None]
  - RENAL DISORDER [None]
